FAERS Safety Report 4488584-9 (Version None)
Quarter: 2004Q4

REPORT INFORMATION
  Report Type: 
  Country: None (occurrence: None)
  Receive Date: 20041028
  Receipt Date: 20041028
  Transmission Date: 20050328
  Serious: No
  Sender: FDA-Public Use
  Company Number: None

PATIENT
  Age: 66 Year
  Sex: Female

DRUGS (8)
  1. HUMULIN N [Suspect]
     Indication: DIABETES MELLITUS
     Dosage: UD
     Dates: start: 20030501
  2. ISOSORBIDE DINITROTE [Concomitant]
  3. MONOPRIL [Concomitant]
  4. ZOCOR [Concomitant]
  5. TENORMIN [Concomitant]
  6. PREMPRO [Concomitant]
  7. NITROGLYCERIN [Concomitant]
  8. DIGITEK [Concomitant]

REACTIONS (2)
  - BLOOD GLUCOSE INCREASED [None]
  - PHARMACEUTICAL PRODUCT COMPLAINT [None]
